FAERS Safety Report 20022590 (Version 1)
Quarter: 2021Q4

REPORT INFORMATION
  Report Type: Other
  Country: GB (occurrence: None)
  Receive Date: 20211102
  Receipt Date: 20211102
  Transmission Date: 20220303
  Serious: Yes (Other)
  Sender: FDA-Public Use
  Company Number: GB-ROCHE-2943111

PATIENT
  Age: 31 Year
  Sex: Male

DRUGS (1)
  1. OCREVUS [Suspect]
     Active Substance: OCRELIZUMAB
     Indication: Relapsing-remitting multiple sclerosis
     Dosage: 6 MONTHLY
     Dates: start: 201906

REACTIONS (2)
  - Multiple sclerosis [Unknown]
  - Therapeutic response decreased [Unknown]
